FAERS Safety Report 23798177 (Version 1)
Quarter: 2024Q2

REPORT INFORMATION
  Report Type: Spontaneous
  Country: US (occurrence: US)
  Receive Date: 20240430
  Receipt Date: 20240430
  Transmission Date: 20240716
  Serious: Yes (Other)
  Sender: FDA-Public Use
  Company Number: US-AUROBINDO-AUR-APL-2024-019139

PATIENT
  Age: 3 Year
  Sex: Male

DRUGS (15)
  1. AMOXICILLIN [Suspect]
     Active Substance: AMOXICILLIN
     Indication: Campylobacter bacteraemia
     Dosage: UNK
     Route: 065
  2. AMOXICILLIN [Suspect]
     Active Substance: AMOXICILLIN
     Indication: Arthritis reactive
  3. AMOXICILLIN [Suspect]
     Active Substance: AMOXICILLIN
     Indication: Erythema nodosum
  4. AZITHROMYCIN [Suspect]
     Active Substance: AZITHROMYCIN
     Indication: Arthritis reactive
     Dosage: FOR 14 DAYS
     Route: 065
  5. AZITHROMYCIN [Suspect]
     Active Substance: AZITHROMYCIN
     Indication: Erythema nodosum
  6. AZITHROMYCIN [Suspect]
     Active Substance: AZITHROMYCIN
     Indication: Campylobacter bacteraemia
  7. CIPROFLOXACIN [Suspect]
     Active Substance: CIPROFLOXACIN
     Indication: Campylobacter bacteraemia
     Dosage: UNK
     Route: 065
  8. CIPROFLOXACIN [Suspect]
     Active Substance: CIPROFLOXACIN
     Indication: Arthritis reactive
  9. CIPROFLOXACIN [Suspect]
     Active Substance: CIPROFLOXACIN
     Indication: Erythema nodosum
  10. ERTAPENEM [Suspect]
     Active Substance: ERTAPENEM
     Indication: Arthritis reactive
     Dosage: UNK
     Route: 065
  11. ERTAPENEM [Suspect]
     Active Substance: ERTAPENEM
     Indication: Campylobacter bacteraemia
  12. ERTAPENEM [Suspect]
     Active Substance: ERTAPENEM
     Indication: Erythema nodosum
  13. NAPROXEN [Suspect]
     Active Substance: NAPROXEN
     Indication: Arthritis reactive
     Dosage: UNK
     Route: 065
  14. NAPROXEN [Suspect]
     Active Substance: NAPROXEN
     Indication: Campylobacter bacteraemia
  15. NAPROXEN [Suspect]
     Active Substance: NAPROXEN
     Indication: Erythema nodosum

REACTIONS (2)
  - Neutropenia [Recovered/Resolved]
  - Drug ineffective [Unknown]
